FAERS Safety Report 5936786-4 (Version None)
Quarter: 2008Q4

REPORT INFORMATION
  Report Type: 
  Country: None (occurrence: None)
  Receive Date: 20081029
  Receipt Date: 20081014
  Transmission Date: 20090506
  Serious: Yes (Hospitalization, Other)
  Sender: FDA-Public Use
  Company Number: 2008S1018708

PATIENT

DRUGS (1)
  1. GLIMEPIRIDE TABLETS (4 MG) [Suspect]
     Dosage: 4 MG; TWICE A DAY; ORAL
     Route: 048

REACTIONS (4)
  - BLOOD GLUCOSE DECREASED [None]
  - MEMORY IMPAIRMENT [None]
  - PRODUCT QUALITY ISSUE [None]
  - SOMNOLENCE [None]
